FAERS Safety Report 20488626 (Version 18)
Quarter: 2023Q1

REPORT INFORMATION
  Report Type: Report from Study
  Country: GB (occurrence: GB)
  Receive Date: 20220218
  Receipt Date: 20230308
  Transmission Date: 20230417
  Serious: Yes (Hospitalization, Disabling, Other)
  Sender: FDA-Public Use
  Company Number: GB-CELLTRION INC.-2020GB035195

PATIENT

DRUGS (119)
  1. RITUXIMAB [Suspect]
     Active Substance: RITUXIMAB
     Indication: Mantle cell lymphoma
     Dosage: 1 DF (DOSE FORM:16)
     Route: 042
     Dates: start: 20200303, end: 20200309
  2. RITUXIMAB [Suspect]
     Active Substance: RITUXIMAB
     Dosage: 318 DF (DOSE FORM: 230)
     Route: 042
     Dates: start: 20200303, end: 20200309
  3. RITUXIMAB [Suspect]
     Active Substance: RITUXIMAB
     Dosage: 1 DF, QD (1X/DAY (DOSAGE FORM: 16) LAST DOSE ADMINISTERED ON 09-MAR-2020
     Route: 041
     Dates: start: 20200309, end: 20200309
  4. RITUXIMAB [Suspect]
     Active Substance: RITUXIMAB
     Dosage: 1 DF EVERY 1 DAY (DOSE FORM: 318)
     Dates: start: 20200309, end: 20200309
  5. RITUXIMAB [Suspect]
     Active Substance: RITUXIMAB
     Dosage: UNK
     Dates: start: 20200303, end: 20200309
  6. RITUXIMAB [Suspect]
     Active Substance: RITUXIMAB
     Dosage: 1 DF (DOSE FORM: 318) , QD
     Dates: start: 20200309, end: 20200309
  7. RITUXIMAB [Suspect]
     Active Substance: RITUXIMAB
     Dosage: 318 DOSAGE FORM, DOSAGE FORM: INFUSION, SOLUTION, LAST DOSE ADMINISTERED ON 09-MAR-2020
     Route: 042
     Dates: start: 20200303, end: 20200309
  8. RITUXIMAB [Suspect]
     Active Substance: RITUXIMAB
     Dosage: 1 DOSAGE FORM, QD (ONCE DAILY, 1 DF, QD (1X/DAY) (CUMULATIVE DOSE: 2227 DF)
     Route: 042
     Dates: start: 20200309, end: 20200309
  9. RITUXIMAB [Suspect]
     Active Substance: RITUXIMAB
     Dosage: 1 DF, QD, CUMULATIVE DOSE: 1.0 DF
     Route: 042
     Dates: start: 20200309, end: 20200309
  10. RITUXIMAB [Suspect]
     Active Substance: RITUXIMAB
     Dosage: 1 DOSAGE FORM, QD, DOSAGE FORM: SOLUTION FOR INFUSION, LAST DOSE ADMINISTERED ON 09-MAR-2020
     Dates: start: 20200309, end: 20200309
  11. RITUXIMAB [Suspect]
     Active Substance: RITUXIMAB
     Dosage: 1 DF (DOSE FORM: 318), DOSAGE FORM: INFUSION, SOLUTION
     Route: 042
     Dates: start: 20200309, end: 20200309
  12. CYTARABINE [Suspect]
     Active Substance: CYTARABINE
     Indication: Mantle cell lymphoma
     Dosage: 20 MG, PHARMACEUTICAL DOSE FORM: 16
     Route: 065
     Dates: start: 20200115, end: 20200303
  13. CYTARABINE [Suspect]
     Active Substance: CYTARABINE
     Dosage: 20 MG, QD
     Route: 041
     Dates: start: 20200309, end: 20200311
  14. CYTARABINE [Suspect]
     Active Substance: CYTARABINE
     Dosage: 20 MG, QD, CUMULATIVE DOSE OF 1040 MG (DOSE FORM: 386)
     Route: 041
     Dates: start: 20200309, end: 20200311
  15. CYTARABINE [Suspect]
     Active Substance: CYTARABINE
     Dosage: UNK MOST RECENT DOSE, CUMULATIVE DOSE 1040 MG (DOASGE FORM: 386)
     Route: 065
     Dates: start: 20200311
  16. CYTARABINE [Suspect]
     Active Substance: CYTARABINE
     Dosage: 60 MG, QD
     Route: 042
     Dates: start: 20200311
  17. CYTARABINE [Suspect]
     Active Substance: CYTARABINE
     Dosage: 80 MILLIGRAM, QD CUMULATIVE DOSE TO FIRST REACTION: 80.0 MG
     Route: 042
     Dates: start: 20200309, end: 20200309
  18. CYTARABINE [Suspect]
     Active Substance: CYTARABINE
     Dosage: 20 MG, QD, CUMULATIVE DOSE OF 1040MG, DOSAGE FORM: INFUSION, SOLUTION
     Dates: start: 20200115, end: 20200303
  19. CYTARABINE [Suspect]
     Active Substance: CYTARABINE
     Dosage: UNK
     Dates: start: 20200311
  20. CYTARABINE [Suspect]
     Active Substance: CYTARABINE
     Dosage: 20 MG, QD (ON 11 MAR2 020
     Dates: start: 20210303
  21. CYTARABINE [Suspect]
     Active Substance: CYTARABINE
     Dosage: (ON 11 MAR2 020, HE RECEIVED MOST RECENT DOSE OF CYTARABINE PRIOR TO EVENT ONSET, DOSAGE)
     Dates: start: 20210309, end: 20210311
  22. CYTARABINE [Suspect]
     Active Substance: CYTARABINE
     Dosage: 20 MG, QD (ON 11 MAR2020), DOSAGE FORM: INFUSION, SOLUTION
     Route: 042
     Dates: start: 20200309, end: 20210311
  23. CYTARABINE [Suspect]
     Active Substance: CYTARABINE
     Dosage: UNK
     Dates: start: 20210309, end: 20210311
  24. CYTARABINE [Suspect]
     Active Substance: CYTARABINE
     Dosage: MOST RECENT DOSE ON 11/MAR/2020
     Dates: start: 20200115, end: 20200303
  25. CYTARABINE [Suspect]
     Active Substance: CYTARABINE
     Dosage: MOST RECENT DOSE ON 11/MAR/2020
     Dates: start: 20200309, end: 20200311
  26. CYTARABINE [Suspect]
     Active Substance: CYTARABINE
     Dosage: UNK
     Dates: start: 20200303
  27. CYTARABINE [Suspect]
     Active Substance: CYTARABINE
     Dosage: 20 MG, QD (ON 11MAR2020), DOSAGE FORM: INFUSION, SOLUTION, LAST ADMINISTERED ON 11-MAR-2020,MOST REC
     Route: 042
     Dates: start: 20210303
  28. CYTARABINE [Suspect]
     Active Substance: CYTARABINE
     Dosage: 20 MG, QD, LAST ADMINISTERED ON 11-MAR-2020,MOST RECENT DOSE OF CYTARABINE
     Route: 042
     Dates: start: 20200303
  29. CYTARABINE [Suspect]
     Active Substance: CYTARABINE
     Dosage: 20 MG (CONCENTRATE FOR SOLUTION FOR INFUSION)
     Dates: start: 20200303
  30. CYTARABINE [Suspect]
     Active Substance: CYTARABINE
     Dosage: 20 MG, QD, DOSAGE FORM: INFUSION, SOLUTION, LAST ADMINISTERED ON 11-MAR-2020,MOST RECENT DOSE OF CY
     Route: 042
     Dates: start: 20210309, end: 20210311
  31. CYTARABINE [Suspect]
     Active Substance: CYTARABINE
     Dosage: 20 MG, QD, LAST ADMINISTERED ON 11-MAR-2020,MOST RECENT DOSE OF
     Route: 042
     Dates: start: 20200309
  32. CYTARABINE [Suspect]
     Active Substance: CYTARABINE
     Dosage: 60 MG, DOSAGE FORM: INFUSION, SOLUTION, LAST ADMINISTERED ON 11-MAR-2020,MOST RECENT DOSE OF CTARABI
     Route: 042
     Dates: start: 20200311
  33. CYTARABINE [Suspect]
     Active Substance: CYTARABINE
     Dosage: 20 MG, QD, DOSAGE FORM: INFUSION, SOLUTION, LAST ADMINISTERED ON 11-MAR-2020,MOST RECENT DOSE OF CY
     Route: 042
     Dates: start: 20210309, end: 20210311
  34. CYTARABINE [Suspect]
     Active Substance: CYTARABINE
     Dosage: 16 DOSAGE FORM, QD, MOST RECENT DOSE ON 11/MAR/2020
     Route: 042
     Dates: start: 20200115, end: 20200303
  35. CYTARABINE [Suspect]
     Active Substance: CYTARABINE
     Dosage: 60 MG
     Route: 042
     Dates: start: 20200311
  36. CYTARABINE [Suspect]
     Active Substance: CYTARABINE
     Dosage: 80 MG, QD, CUMULATIVE DOSE: 80MG
     Route: 042
     Dates: start: 20200309, end: 20200311
  37. CYTARABINE [Suspect]
     Active Substance: CYTARABINE
     Dosage: 20 MG, QD, CUMULATIVE DOSE: 120MG
     Route: 042
     Dates: start: 20200303
  38. CYTARABINE [Suspect]
     Active Substance: CYTARABINE
     Dosage: 20 MG, QD
     Route: 042
     Dates: start: 20200115, end: 20200303
  39. CYTARABINE [Suspect]
     Active Substance: CYTARABINE
     Dosage: 20 MG
     Route: 042
     Dates: start: 20200309, end: 20200311
  40. CYTARABINE [Suspect]
     Active Substance: CYTARABINE
     Dosage: 20 MG, QD (ON 11 MAR2 020, HE RECEIVED MOST RECENT DOSE OF CYTARABINE PRIOR TO EVENT ONSET, DOSAGE),
     Dates: start: 20210309, end: 20210311
  41. CYTARABINE [Suspect]
     Active Substance: CYTARABINE
     Dosage: 16 DOSAGE FORM, QD, MOST RECENT DOSE ON 11/MAR/2020
     Dates: start: 20200309, end: 20200311
  42. CYTARABINE [Suspect]
     Active Substance: CYTARABINE
     Indication: Mantle cell lymphoma
     Dosage: 20 MG, QD, LAST ADMINISTERED ON 11-MAR-2020,MOST RECENT DOSE OF CYTARABINE (DOSE FORM: 386)
     Route: 041
     Dates: start: 20200115, end: 20200303
  43. CYTARABINE [Suspect]
     Active Substance: CYTARABINE
     Dosage: 20 MG, QD, ADDITIONAL INFO: LAST ADMINISTERED ON 11-MAR-2020 (DOSE FORM: 386)
     Route: 041
     Dates: start: 20210309, end: 20210311
  44. CYTARABINE [Suspect]
     Active Substance: CYTARABINE
     Dosage: ADDITIONAL INFO: LAST ADMINISTERED ON 11-MAR-2020, MOST RECENT DOSE (DOSE FORM: 386)
     Route: 065
     Dates: start: 20200311
  45. CYTARABINE [Suspect]
     Active Substance: CYTARABINE
     Dosage: UNK (DOSAGE TEXT: 60 MG)
     Route: 065
     Dates: start: 20200311
  46. CYTARABINE [Suspect]
     Active Substance: CYTARABINE
     Dosage: 20 MG, QD (CUMULATIVE DOSE: 1040MG)
     Route: 042
     Dates: start: 20210309
  47. CYTARABINE [Suspect]
     Active Substance: CYTARABINE
     Dosage: 16 DOSAGE FORM, QD
     Route: 042
     Dates: start: 20200115, end: 20200303
  48. CYTARABINE [Suspect]
     Active Substance: CYTARABINE
     Dosage: 20 MG, QD (DOSAGE FORM: POWDER FOR SOLUTION FOR INFUSION. ON 11 MAR 2020, HE RECEIVED MOST RECENT DO
     Route: 042
     Dates: start: 20200309, end: 20200311
  49. CYTARABINE [Suspect]
     Active Substance: CYTARABINE
     Dosage: 16 MG, QD (DOSAGE FORM: SOLUTION FOR INFUSION)
     Route: 042
     Dates: start: 20200309, end: 20210311
  50. CYTARABINE [Suspect]
     Active Substance: CYTARABINE
     Dosage: 20 MG, QD (ON 11 MAR 2020)
     Route: 042
     Dates: start: 20200309, end: 20200311
  51. CYTARABINE [Suspect]
     Active Substance: CYTARABINE
     Dosage: 15 DOSAGE FORM (DOSAGE FORM: CONCENTRATE FOR SOLUTION FOR INFUSION)
     Route: 042
     Dates: start: 20200115, end: 20200303
  52. CYTARABINE [Suspect]
     Active Substance: CYTARABINE
     Dosage: 20 MG, QD (DOSAGE FORM: CONCENTRATE FOR SOLUTION FOR INFUSION)
     Route: 042
     Dates: start: 20200309, end: 20200311
  53. CYTARABINE [Suspect]
     Active Substance: CYTARABINE
     Dosage: 20 MG, QD (DOSAGE FORM: CONCENTRATE FOR SOLUTION FOR INFUSION)
     Route: 042
     Dates: start: 20200309, end: 20200311
  54. CYTARABINE [Suspect]
     Active Substance: CYTARABINE
     Indication: Product used for unknown indication
     Dosage: 20 MG
     Route: 042
     Dates: start: 20210309, end: 20210311
  55. CYTARABINE [Suspect]
     Active Substance: CYTARABINE
     Dosage: 80 MG, QD
     Route: 042
     Dates: start: 20200309, end: 20200311
  56. BENDAMUSTINE HYDROCHLORIDE [Suspect]
     Active Substance: BENDAMUSTINE HYDROCHLORIDE
     Indication: Mantle cell lymphoma
     Dosage: (LAST DOSE ADMINISTERED ON 09-MAR-2020)
     Route: 042
     Dates: start: 20200309, end: 20200309
  57. BENDAMUSTINE HYDROCHLORIDE [Suspect]
     Active Substance: BENDAMUSTINE HYDROCHLORIDE
     Dosage: 1 DOSAGE FORM, 1 DF (DOSE FORM: 230) QD
     Dates: start: 20200309, end: 20200309
  58. BENDAMUSTINE HYDROCHLORIDE [Suspect]
     Active Substance: BENDAMUSTINE HYDROCHLORIDE
     Dosage: 4 DOSAGE FORM, QD, LAST DOSE ADMINISTERED ON 09-MAR-2020
     Dates: start: 20200309, end: 20200309
  59. BENDAMUSTINE HYDROCHLORIDE [Suspect]
     Active Substance: BENDAMUSTINE HYDROCHLORIDE
     Dosage: 120 DOSAGE FORM (POWDER FOR SOLUTION FOR INFUSION)
     Dates: start: 20200309
  60. BENDAMUSTINE HYDROCHLORIDE [Suspect]
     Active Substance: BENDAMUSTINE HYDROCHLORIDE
     Dosage: UNK, DOSE FORM: 16
     Dates: start: 20200309, end: 20200309
  61. BENDAMUSTINE HYDROCHLORIDE [Suspect]
     Active Substance: BENDAMUSTINE HYDROCHLORIDE
     Dosage: 12 DOSAGE FORM
     Dates: start: 20200309
  62. BENDAMUSTINE HYDROCHLORIDE [Suspect]
     Active Substance: BENDAMUSTINE HYDROCHLORIDE
     Dosage: 12 DOSAGE FORM (DOSE FORM: 120)
     Dates: start: 20200309
  63. BENDAMUSTINE HYDROCHLORIDE [Suspect]
     Active Substance: BENDAMUSTINE HYDROCHLORIDE
     Dosage: 1 DOSAGE FORM, QD (START DATE: 09-MAR-2021DOSE FORM OF 365)
  64. BENDAMUSTINE HYDROCHLORIDE [Suspect]
     Active Substance: BENDAMUSTINE HYDROCHLORIDE
     Dosage: UNK (1X/DAY (DOSAGE FORM: 201))
     Dates: start: 20200309
  65. BENDAMUSTINE HYDROCHLORIDE [Suspect]
     Active Substance: BENDAMUSTINE HYDROCHLORIDE
     Dosage: 124 DOSAGE FORM
     Dates: start: 20200309
  66. BENDAMUSTINE HYDROCHLORIDE [Suspect]
     Active Substance: BENDAMUSTINE HYDROCHLORIDE
     Dosage: 4 DOSAGE FORM, QD(START DATE:09-MAR-2021,STOP DATE:09-MAR-2021)
     Dates: start: 20200309
  67. BENDAMUSTINE HYDROCHLORIDE [Suspect]
     Active Substance: BENDAMUSTINE HYDROCHLORIDE
     Dosage: 4 DOSAGE FORM, QD(START DATE:09-MAR-2021,STOP DATE:09-MAR-2021)
     Dates: start: 20210309
  68. BENDAMUSTINE HYDROCHLORIDE [Suspect]
     Active Substance: BENDAMUSTINE HYDROCHLORIDE
     Dosage: 12 DOSAGE FORM, LAST DOSE ADMINISTERED ON 09-MAR-2020
     Route: 042
     Dates: start: 20200309
  69. BENDAMUSTINE HYDROCHLORIDE [Suspect]
     Active Substance: BENDAMUSTINE HYDROCHLORIDE
     Dosage: 120 DOSAGE FORM, QD, LAST DOSE ADMINISTERED ON 09-MAR-2020
     Route: 042
     Dates: start: 20200309, end: 20200309
  70. BENDAMUSTINE HYDROCHLORIDE [Suspect]
     Active Substance: BENDAMUSTINE HYDROCHLORIDE
     Dosage: 4 DOSAGE FORM, QD (POWDER FOR SOLUTION FOR INFUSION)
     Dates: start: 20200309, end: 20200309
  71. BENDAMUSTINE HYDROCHLORIDE [Suspect]
     Active Substance: BENDAMUSTINE HYDROCHLORIDE
     Dosage: 120 DOSAGE FORM, QD, LAST DOSE ADMINISTERED ON 09-MAR-2020
     Route: 042
     Dates: start: 20200309, end: 20200309
  72. BENDAMUSTINE HYDROCHLORIDE [Suspect]
     Active Substance: BENDAMUSTINE HYDROCHLORIDE
     Dosage: 1 DOSAGE FORM,, QD, DOSAGE FORM: SOLUTION FOR INFUSION
     Route: 042
     Dates: start: 20200309, end: 20200309
  73. BENDAMUSTINE HYDROCHLORIDE [Suspect]
     Active Substance: BENDAMUSTINE HYDROCHLORIDE
     Dosage: UNK, DOSE FORM: 16, QD
     Dates: start: 20200309, end: 20200309
  74. BENDAMUSTINE HYDROCHLORIDE [Suspect]
     Active Substance: BENDAMUSTINE HYDROCHLORIDE
     Dosage: (LAST DOSE ADMINISTERED ON 09-MAR-2020)
     Route: 042
     Dates: start: 20200309, end: 20200309
  75. BENDAMUSTINE HYDROCHLORIDE [Suspect]
     Active Substance: BENDAMUSTINE HYDROCHLORIDE
     Dosage: UNK (1X/DAY (DOSAGE FORM: POWDER FOR SOLUTION FOR INJECTION))
     Dates: start: 20200309
  76. BENDAMUSTINE HYDROCHLORIDE [Suspect]
     Active Substance: BENDAMUSTINE HYDROCHLORIDE
     Dosage: 1 DOSAGE FORM, 1 DF (DOSE FORM: SOLUTION FOR INFUSION), QD
     Route: 042
     Dates: start: 20200309, end: 20200309
  77. BENDAMUSTINE [Suspect]
     Active Substance: BENDAMUSTINE
     Indication: Mantle cell lymphoma
     Dosage: 120 (LAST DOSE ADMINISTERED ON 09-MAR-2020) CUMULATIVE DOSE TO FIRST REACTION: 4.0 {DF}
     Route: 042
     Dates: start: 20200309, end: 20200309
  78. BENDAMUSTINE [Suspect]
     Active Substance: BENDAMUSTINE
     Dosage: 12 DF
     Route: 042
     Dates: start: 20210309
  79. BENDAMUSTINE [Suspect]
     Active Substance: BENDAMUSTINE
     Dosage: UNK QD (1X/DAY (DOSAGE FORM: 201) (CUMULATIVE DOSE: 124DF)
     Dates: start: 20200309, end: 20220309
  80. BENDAMUSTINE [Suspect]
     Active Substance: BENDAMUSTINE
     Dosage: UNK
     Route: 042
     Dates: start: 20200309, end: 20200309
  81. BENDAMUSTINE [Suspect]
     Active Substance: BENDAMUSTINE
     Dosage: 12 DOSAGE FORM, QD UNK QD (1X/DAY (DOSAGE FORM: 201)
     Route: 042
     Dates: start: 20200309
  82. BENDAMUSTINE [Suspect]
     Active Substance: BENDAMUSTINE
     Dosage: 1 DOSAGE FORM, QD
     Route: 042
     Dates: start: 20200309, end: 20200309
  83. BENDAMUSTINE [Suspect]
     Active Substance: BENDAMUSTINE
     Dosage: 120 DOSAGE FORM, QD
     Route: 042
     Dates: start: 20200309, end: 20200309
  84. BENDAMUSTINE [Suspect]
     Active Substance: BENDAMUSTINE
     Dosage: 4 DOSAGE FORM
     Route: 042
     Dates: start: 20200309, end: 20210309
  85. BENDAMUSTINE [Suspect]
     Active Substance: BENDAMUSTINE
     Dosage: 4 DOSAGE FORM, QD
     Route: 042
     Dates: start: 20200309, end: 20200309
  86. BENDAMUSTINE [Suspect]
     Active Substance: BENDAMUSTINE
     Dosage: 1 DOSAGE FORM, QD
     Route: 042
     Dates: start: 20200309, end: 20200309
  87. BENDAMUSTINE [Suspect]
     Active Substance: BENDAMUSTINE
     Dosage: UNK
     Route: 042
     Dates: start: 20200309, end: 20200309
  88. BENDAMUSTINE [Suspect]
     Active Substance: BENDAMUSTINE
     Indication: Product used for unknown indication
     Dosage: UNK
     Route: 042
     Dates: start: 20200309, end: 20200309
  89. BENDAMUSTINE [Suspect]
     Active Substance: BENDAMUSTINE
     Indication: Mantle cell lymphoma
     Dosage: UNK, QD (LAST DOSE ADINISTERED ON 09-MAR-2020)
     Route: 042
     Dates: start: 20200309, end: 20200309
  90. BENDAMUSTINE [Suspect]
     Active Substance: BENDAMUSTINE
     Dosage: 4 DOSAGE FORM, QD
     Dates: start: 20200309, end: 20200309
  91. BENDAMUSTINE [Suspect]
     Active Substance: BENDAMUSTINE
     Dosage: UNK (1X/DAY (DOSAGE FORM: 201))
     Dates: start: 20200309
  92. BENDAMUSTINE [Suspect]
     Active Substance: BENDAMUSTINE
     Dosage: 12 DOSAGE FORM (DOSE FORM: 120 )
     Dates: start: 20200309
  93. BENDAMUSTINE [Suspect]
     Active Substance: BENDAMUSTINE
     Dosage: 12 DOSAGE FORM
     Dates: start: 20200309
  94. BENDAMUSTINE [Suspect]
     Active Substance: BENDAMUSTINE
     Dosage: UNK, DOSE FORM: 16
     Dates: start: 20200309, end: 20200309
  95. BENDAMUSTINE [Suspect]
     Active Substance: BENDAMUSTINE
     Dosage: 1 DOSAGE FORM, 1 DF (DOSE FORM: 230)
     Dates: start: 20200309, end: 20200309
  96. BENDAMUSTINE [Suspect]
     Active Substance: BENDAMUSTINE
     Dosage: 1 DOSAGE FORM, QD (START DATE: 09-MAR-2021DOSE FORM OF 365)
  97. BENDAMUSTINE [Suspect]
     Active Substance: BENDAMUSTINE
     Dosage: 4 DOSAGE FORM, QD(START DATE:09-MAR-2021,STOP DATE:09-MAR-2021)
     Dates: start: 20210309
  98. BENDAMUSTINE [Suspect]
     Active Substance: BENDAMUSTINE
     Dosage: 120 DOSAGE FORM
     Dates: start: 20210309
  99. BENDAMUSTINE [Suspect]
     Active Substance: BENDAMUSTINE
     Dosage: 124 DOSAGE FORM
     Dates: start: 20210309
  100. BENDAMUSTINE [Suspect]
     Active Substance: BENDAMUSTINE
     Dosage: UNK
     Route: 042
     Dates: start: 20200309, end: 20200309
  101. BENDAMUSTINE [Suspect]
     Active Substance: BENDAMUSTINE
     Dosage: 1 DF, QD
     Route: 042
  102. BENDAMUSTINE [Suspect]
     Active Substance: BENDAMUSTINE
     Dosage: 12 DF
     Route: 042
     Dates: start: 20210309
  103. BENDAMUSTINE [Suspect]
     Active Substance: BENDAMUSTINE
     Dosage: 120 DF, QD
     Route: 042
     Dates: end: 20200309
  104. BENDAMUSTINE [Suspect]
     Active Substance: BENDAMUSTINE
     Dosage: 1 DF
     Route: 042
     Dates: start: 20200309, end: 20200309
  105. BENDAMUSTINE [Suspect]
     Active Substance: BENDAMUSTINE
     Dosage: 124 DF, QD
     Route: 042
     Dates: start: 20200309
  106. BENDAMUSTINE [Suspect]
     Active Substance: BENDAMUSTINE
     Dosage: 4 DF, QD
     Dates: start: 20200309, end: 20200309
  107. BENDAMUSTINE [Suspect]
     Active Substance: BENDAMUSTINE
     Dosage: UNK
     Route: 042
     Dates: start: 20200309
  108. PARSACLISIB [Suspect]
     Active Substance: PARSACLISIB
     Indication: Mantle cell lymphoma
     Dosage: 20 MG, QD (DOSE PRIOR TO THE SERIOUS ADVERSE EVENTS (SAES) WAS TAKEN ON 03MAR2020), 245, INCB 50465
     Route: 048
     Dates: start: 20200115, end: 20200303
  109. PARSACLISIB [Suspect]
     Active Substance: PARSACLISIB
     Indication: Mantle cell lymphoma
     Dosage: 20 MILLIGRAM DAILY;ADDITIONAL INFO: INCB 50465 (MOST RECENT DOSE RECEIVED ON 03-MAR-2020)((DOSE PRIO
     Route: 048
     Dates: start: 20200115, end: 20200303
  110. PARSACLISIB [Suspect]
     Active Substance: PARSACLISIB
     Indication: Mantle cell lymphoma
     Dosage: 20 MILLIGRAM, QD (DOSE PRIOR TO THE SERIOUS ADVERSE EVENTS (SAES) WAS TAKEN ON 03MAR2020) INCB 50465
     Route: 048
     Dates: start: 20200115, end: 20200303
  111. ACETAMINOPHEN [Concomitant]
     Active Substance: ACETAMINOPHEN
     Indication: Cough
     Dosage: UNK
     Dates: start: 20200309
  112. ACETAMINOPHEN [Concomitant]
     Active Substance: ACETAMINOPHEN
     Indication: Malaise
     Dosage: UNK
     Route: 065
     Dates: start: 20200319
  113. ACETAMINOPHEN [Concomitant]
     Active Substance: ACETAMINOPHEN
     Indication: Decreased appetite
     Dosage: UNK
  114. ACETAMINOPHEN [Concomitant]
     Active Substance: ACETAMINOPHEN
     Indication: Malaise
  115. MEROPENEM [Concomitant]
     Active Substance: MEROPENEM
     Indication: Malaise
     Dosage: UNK
     Route: 065
     Dates: start: 20200309
  116. MEROPENEM [Concomitant]
     Active Substance: MEROPENEM
     Indication: Cough
     Dosage: UNK
     Route: 065
     Dates: start: 20200319
  117. MEROPENEM [Concomitant]
     Active Substance: MEROPENEM
     Indication: Decreased appetite
     Dosage: UNK
  118. MEROPENEM [Concomitant]
     Active Substance: MEROPENEM
     Indication: Decreased appetite
     Dosage: UNK
     Dates: start: 20200309
  119. MEROPENEM [Concomitant]
     Active Substance: MEROPENEM
     Dosage: UNK
     Dates: start: 20200319

REACTIONS (9)
  - Pneumonia [Recovered/Resolved]
  - Neutropenic sepsis [Recovered/Resolved]
  - Bronchitis [Recovered/Resolved]
  - Bronchitis [Recovered/Resolved]
  - Bronchitis [Recovered/Resolved]
  - Neutrophil count decreased [Recovered/Resolved]
  - Intentional product use issue [Unknown]
  - Product use in unapproved indication [Unknown]
  - Off label use [Unknown]

NARRATIVE: CASE EVENT DATE: 20200309
